FAERS Safety Report 11985262 (Version 2)
Quarter: 2016Q3

REPORT INFORMATION
  Report Type: Spontaneous
  Country: US (occurrence: US)
  Receive Date: 20160201
  Receipt Date: 20160706
  Transmission Date: 20161109
  Serious: No
  Sender: FDA-Public Use
  Company Number: US-ACTELION PHARMACEUTICALS US, INC.-A-US2016-130398

PATIENT
  Age: 72 Year
  Sex: Male

DRUGS (12)
  1. XALATAN [Concomitant]
     Active Substance: LATANOPROST
  2. AZOPT [Concomitant]
     Active Substance: BRINZOLAMIDE
  3. TRIAMCINOLONE ACETONIDE. [Concomitant]
     Active Substance: TRIAMCINOLONE ACETONIDE
  4. CARBIDOPA AND LEVODOPA [Concomitant]
     Active Substance: CARBIDOPA\LEVODOPA
  5. VITAMIN D3 [Concomitant]
     Active Substance: CHOLECALCIFEROL
  6. MYRBETRIQ [Concomitant]
     Active Substance: MIRABEGRON
  7. IRON [Concomitant]
     Active Substance: IRON
  8. SENOKOT [Concomitant]
     Active Substance: SENNOSIDES
  9. SEROQUEL [Concomitant]
     Active Substance: QUETIAPINE FUMARATE
  10. VALCHLOR [Suspect]
     Active Substance: MECHLORETHAMINE
     Indication: MYCOSIS FUNGOIDES
     Dosage: UNK, 3X/WEEK
     Route: 061
     Dates: start: 20151021
  11. ARTIFICIAL TEARS [Concomitant]
     Active Substance: GLYCERIN\HYPROMELLOSES\POLYETHYLENE GLYCOL 400
  12. MULTIVITAMIN [Concomitant]
     Active Substance: VITAMINS

REACTIONS (2)
  - Drug ineffective [Not Recovered/Not Resolved]
  - Drug hypersensitivity [Unknown]
